FAERS Safety Report 6901966-8 (Version None)
Quarter: 2010Q3

REPORT INFORMATION
  Report Type: 
  Country: None (occurrence: None)
  Receive Date: 20100803
  Receipt Date: 20080331
  Transmission Date: 20110219
  Serious: No
  Sender: FDA-Public Use
  Company Number: US-PFIZER INC-2008029146

PATIENT
  Sex: Female
  Weight: 68 kg

DRUGS (4)
  1. LYRICA [Suspect]
     Indication: PAIN IN EXTREMITY
     Route: 048
     Dates: start: 20080312
  2. LYRICA [Suspect]
     Indication: HERPES ZOSTER
  3. ANTIHYPERTENSIVES [Concomitant]
  4. DRUG, UNSPECIFIED [Concomitant]

REACTIONS (4)
  - BLADDER PAIN [None]
  - DIARRHOEA [None]
  - GASTROINTESTINAL PAIN [None]
  - PAIN [None]
